FAERS Safety Report 5045930-5 (Version None)
Quarter: 2006Q2

REPORT INFORMATION
  Report Type: 
  Country: None (occurrence: None)
  Receive Date: 20060612
  Receipt Date: 20060316
  Transmission Date: 20061013
  Serious: No
  Sender: FDA-Public Use
  Company Number: 2006PV010369

PATIENT
  Age: 53 Year
  Sex: Male
  Weight: 158.759 kg

DRUGS (12)
  1. BYETTA [Suspect]
     Indication: DIABETES MELLITUS NON-INSULIN-DEPENDENT
     Dosage: 5 MCG;BID;SC
     Route: 058
     Dates: start: 20060201
  2. GLIPIZIDE [Concomitant]
  3. METFORMIN [Concomitant]
  4. ACTOS [Concomitant]
  5. NORVASC [Concomitant]
  6. SULAR [Concomitant]
  7. LIPITOR [Concomitant]
  8. CRESTOR [Concomitant]
  9. TOPROL-XL [Concomitant]
  10. TRICOR [Concomitant]
  11. PLAVIX [Concomitant]
  12. NORVASC [Concomitant]

REACTIONS (1)
  - BLISTER [None]
